FAERS Safety Report 12216885 (Version 3)
Quarter: 2016Q2

REPORT INFORMATION
  Report Type: Spontaneous
  Country: BG (occurrence: BG)
  Receive Date: 20160329
  Receipt Date: 20160429
  Transmission Date: 20160815
  Serious: Yes (Other)
  Sender: FDA-Public Use
  Company Number: BG-009507513-1603BGR004928

PATIENT
  Age: 68 Year
  Sex: Female

DRUGS (8)
  1. RIBAVIRIN. [Suspect]
     Active Substance: RIBAVIRIN
     Dosage: 400 MG, DAILY
     Route: 048
     Dates: start: 2015, end: 2015
  2. RIBAVIRIN. [Suspect]
     Active Substance: RIBAVIRIN
     Dosage: 200 MG, DAILY; DOSE REMAINED THE SAME UNTIL WEEK 12
     Route: 048
     Dates: start: 2015, end: 2015
  3. OMBITASVIR [Suspect]
     Active Substance: OMBITASVIR
     Indication: ANTIVIRAL TREATMENT
     Dosage: UNK, DOSE REMAINED SAME TILL WEEK 12
     Dates: start: 20150129
  4. RITONAVIR. [Suspect]
     Active Substance: RITONAVIR
     Indication: ANTIVIRAL TREATMENT
     Dosage: UNK
     Dates: start: 20150129, end: 2015
  5. DASABUVIR [Suspect]
     Active Substance: DASABUVIR
     Dosage: UNK, DOSE DECREASED AT WEEK 4
     Dates: start: 201502
  6. RIBAVIRIN. [Suspect]
     Active Substance: RIBAVIRIN
     Indication: ANTIVIRAL TREATMENT
     Dosage: 800 MG, DAILY; DOSE REDUCED AT WEEK 4
     Route: 048
     Dates: start: 20150129, end: 2015
  7. DASABUVIR [Suspect]
     Active Substance: DASABUVIR
     Indication: ANTIVIRAL TREATMENT
     Dosage: UNK
     Dates: start: 20150129
  8. PARITAPREVIR [Suspect]
     Active Substance: PARITAPREVIR
     Indication: ANTIVIRAL TREATMENT
     Dosage: UNK
     Dates: start: 20150129, end: 2015

REACTIONS (3)
  - Hyperbilirubinaemia [Recovered/Resolved]
  - Condition aggravated [Recovered/Resolved]
  - Anaemia [Recovering/Resolving]

NARRATIVE: CASE EVENT DATE: 20150202
